FAERS Safety Report 5472827-9 (Version None)
Quarter: 2007Q4

REPORT INFORMATION
  Report Type: 
  Country: None (occurrence: None)
  Receive Date: 20071001
  Receipt Date: 20061121
  Transmission Date: 20080405
  Serious: No
  Sender: FDA-Public Use
  Company Number: US-ASTRAZENECA-2006UW25834

PATIENT
  Age: 67 Year
  Sex: Female
  Weight: 64.4 kg

DRUGS (1)
  1. ARIMIDEX [Suspect]
     Indication: BREAST CANCER FEMALE
     Route: 048
     Dates: start: 20040101

REACTIONS (2)
  - BLOOD LACTATE DEHYDROGENASE INCREASED [None]
  - OSTEOPOROSIS [None]
